FAERS Safety Report 15687948 (Version 1)
Quarter: 2018Q4

REPORT INFORMATION
  Report Type: Spontaneous
  Country: US (occurrence: US)
  Receive Date: 20181205
  Receipt Date: 20181205
  Transmission Date: 20190205
  Serious: No
  Sender: FDA-Public Use
  Company Number: US-ROCHE-2205531

PATIENT

DRUGS (2)
  1. GAZYVA [Suspect]
     Active Substance: OBINUTUZUMAB
     Indication: PRODUCT USED FOR UNKNOWN INDICATION
     Route: 065
  2. IBRUTINIB [Concomitant]
     Active Substance: IBRUTINIB

REACTIONS (3)
  - Fatigue [Unknown]
  - Dizziness [Unknown]
  - Nausea [Unknown]
